FAERS Safety Report 20374398 (Version 5)
Quarter: 2022Q1

REPORT INFORMATION
  Report Type: Spontaneous
  Country: SE (occurrence: SE)
  Receive Date: 20220125
  Receipt Date: 20220316
  Transmission Date: 20220423
  Serious: Yes (Death, Other)
  Sender: FDA-Public Use
  Company Number: SE-VERTEX PHARMACEUTICALS-2022-000977

PATIENT
  Age: 51 Year
  Sex: Male

DRUGS (38)
  1. TRIKAFTA [Suspect]
     Active Substance: ELEXACAFTOR\IVACAFTOR\TEZACAFTOR
     Indication: Cystic fibrosis
     Dosage: 2 TABS AM + 1 TAB PM
     Route: 048
     Dates: start: 20211124, end: 20220101
  2. CREON [Concomitant]
     Active Substance: PANCRELIPASE AMYLASE\PANCRELIPASE LIPASE\PANCRELIPASE PROTEASE
     Dosage: UNK
     Route: 048
     Dates: end: 20220101
  3. CHOLECALCIFEROL [Concomitant]
     Active Substance: CHOLECALCIFEROL
     Dosage: 2000 IU
     Route: 048
     Dates: start: 20190314, end: 20220101
  4. .ALPHA.-TOCOPHEROL ACETATE [Concomitant]
     Active Substance: .ALPHA.-TOCOPHEROL ACETATE
     Dosage: 100 MG
     Route: 048
     Dates: start: 20190314, end: 20220101
  5. BEVIPLEX COMP [Concomitant]
     Dosage: UNK
     Route: 048
     Dates: start: 20180509, end: 20220101
  6. BEVIPLEX COMP [Concomitant]
     Route: 048
     Dates: start: 20180509
  7. VITACON [CYANOCOBALAMIN] [Concomitant]
     Dosage: UNK
     Dates: start: 20210305, end: 20220101
  8. LEVEMIR [Concomitant]
     Active Substance: INSULIN DETEMIR
     Dosage: 100 U/ML SOLUTION FOR INJECTION IN CARTRIDGE
     Route: 058
     Dates: start: 20180423, end: 20220101
  9. NOVORAPID [Concomitant]
     Active Substance: INSULIN ASPART
     Dosage: 100 U/ML
     Route: 058
     Dates: end: 20220101
  10. URSODIOL [Concomitant]
     Active Substance: URSODIOL
     Dosage: 250 MG
     Route: 048
     Dates: start: 20171222, end: 20220101
  11. BISOLVON [Concomitant]
     Active Substance: BROMHEXINE HYDROCHLORIDE
     Dosage: 8 MG
     Route: 048
     Dates: start: 20210222, end: 20220101
  12. SODIUM CHLORIDE [Concomitant]
     Active Substance: SODIUM CHLORIDE
     Dosage: UNK
     Dates: end: 20220101
  13. PULMOZYME [Concomitant]
     Active Substance: DORNASE ALFA
     Dosage: 1 MILLIGRAM PER MILLILITRE
     Route: 055
     Dates: start: 20210505, end: 20220101
  14. ALBUTEROL SULFATE [Concomitant]
     Active Substance: ALBUTEROL SULFATE
     Dosage: 2 MILLIGRAM PER MILLILITRE
     Route: 055
     Dates: start: 20171221, end: 20220101
  15. SEREVENT DISKUS [Concomitant]
     Active Substance: SALMETEROL XINAFOATE
     Dosage: UNK
     Dates: end: 20220101
  16. PULMICORT TURBUHALER [Concomitant]
     Active Substance: BUDESONIDE
     Dosage: 400 MICROGRAM
     Route: 055
     Dates: start: 20180419, end: 20220101
  17. ASCORBIC ACID\NIACINAMIDE\PYRIDOXINE\RIBOFLAVIN\THIAMINE [Concomitant]
     Active Substance: ASCORBIC ACID\NIACINAMIDE\PYRIDOXINE\RIBOFLAVIN\THIAMINE
     Route: 048
     Dates: start: 20171222
  18. ACETAMINOPHEN [Concomitant]
     Active Substance: ACETAMINOPHEN
     Dosage: 1 TABLET PRN, TWICE DAILY
     Route: 048
     Dates: start: 20180419
  19. MELATONIN [Concomitant]
     Active Substance: MELATONIN
     Dosage: 1-3 TN
     Dates: start: 20171217
  20. ADDEX [AMOXICILLIN SODIUM;CLAVULANATE POTASSIUM] [Concomitant]
     Dosage: UNK
     Route: 055
     Dates: start: 20171221
  21. OXIS [Concomitant]
     Active Substance: FORMOTEROL FUMARATE
     Dosage: 9 MICROGRAMS/DOSE
     Route: 055
     Dates: start: 20171221
  22. HERBALS\PLANTAGO OVATA LEAF [Concomitant]
     Active Substance: HERBALS\PLANTAGO OVATA LEAF
     Dosage: 1 DOSE MEASUREMENT PRN
     Route: 048
     Dates: start: 20180507
  23. AERIUS (DESLORATADINE) [Concomitant]
     Active Substance: DESLORATADINE
     Dosage: 5 MG, 1 TABLET PRN 1-2 TIMES DAILY
     Route: 048
     Dates: start: 20171222
  24. ALBUTEROL SULFATE [Concomitant]
     Active Substance: ALBUTEROL SULFATE
     Dosage: 0.1 MG/DOSE
     Route: 055
     Dates: start: 20211124
  25. HERACILLIN [FLUCLOXACILLIN SODIUM] [Concomitant]
     Dosage: 1 GRAM
     Route: 048
     Dates: start: 20190314
  26. MENADION MEDIC [Concomitant]
     Dosage: UNK
     Dates: start: 20191029
  27. SACCHAROMYCES CEREVISIAE [Concomitant]
     Active Substance: SACCHAROMYCES CEREVISIAE
     Dosage: 250 MG
     Route: 048
     Dates: start: 20171221
  28. ACETYLCYSTEINE [Concomitant]
     Active Substance: ACETYLCYSTEINE
     Dosage: 200 MILLIGRAM PER MILLILITRE
     Route: 055
     Dates: start: 20171221
  29. SALMETEROL XINAFOATE [Concomitant]
     Active Substance: SALMETEROL XINAFOATE
     Dosage: 25 MICROGRAMS/DOSE
     Route: 055
  30. SODIUM CHLORIDE [Concomitant]
     Active Substance: SODIUM CHLORIDE
     Dosage: 500 MG, 2 TABLETS 2-3 TIMES DAILY
     Dates: start: 20200623
  31. STERILE WATER FRESENIUS [Concomitant]
  32. LOSEC [Concomitant]
     Active Substance: OMEPRAZOLE
     Dosage: 20 MG, 1 TABLET PRN 1 TIME DAILY
     Route: 048
     Dates: start: 20171222
  33. NAPROXEN [Concomitant]
     Active Substance: NAPROXEN
     Dosage: 500 MG, 1 TABLET PRN 1-2 TIMES DAILY
     Route: 048
     Dates: start: 20180521
  34. VITACON [PHYTOMENADIONE] [Concomitant]
     Dosage: 10 MG
  35. BRICANYL [Concomitant]
     Active Substance: TERBUTALINE SULFATE
     Dosage: 0.5 MG/ DOSE
     Route: 055
     Dates: start: 20171221
  36. IBUPROFEN [Concomitant]
     Active Substance: IBUPROFEN
     Dosage: 400 MG
     Route: 048
     Dates: start: 20210223
  37. VITAMIN E [Concomitant]
     Active Substance: .ALPHA.-TOCOPHEROL
  38. INSULIN DETEMIR [Concomitant]
     Active Substance: INSULIN DETEMIR

REACTIONS (2)
  - Insomnia [Unknown]
  - Completed suicide [Fatal]

NARRATIVE: CASE EVENT DATE: 20220101
